FAERS Safety Report 4501531-6 (Version None)
Quarter: 2004Q4

REPORT INFORMATION
  Report Type: 
  Country: None (occurrence: None)
  Receive Date: 20041109
  Receipt Date: 20041101
  Transmission Date: 20050328
  Serious: Yes (Hospitalization)
  Sender: FDA-Public Use
  Company Number: SUS1-2004-00490

PATIENT
  Age: 67 Year
  Sex: Male

DRUGS (1)
  1. PENTASA [Suspect]
     Indication: COLITIS ULCERATIVE
     Dosage: 1500 MG, 1X/DAY:  QD, ORAL
     Route: 048
     Dates: start: 20040310, end: 20040720

REACTIONS (2)
  - INTERSTITIAL LUNG DISEASE [None]
  - PNEUMONITIS [None]
